FAERS Safety Report 8124725-X (Version None)
Quarter: 2012Q1

REPORT INFORMATION
  Report Type: 
  Country: None (occurrence: None)
  Receive Date: 20120209
  Receipt Date: 20120203
  Transmission Date: 20120608
  Serious: Yes (Other)
  Sender: FDA-Public Use
  Company Number: IT-JNJFOC-20120202451

PATIENT
  Age: 37 Year
  Sex: Male

DRUGS (2)
  1. MINOXIDIL [Suspect]
     Route: 061
  2. MINOXIDIL [Suspect]
     Indication: ANDROGENETIC ALOPECIA
     Route: 061

REACTIONS (1)
  - CHORIORETINOPATHY [None]
